FAERS Safety Report 9014651 (Version 2)
Quarter: 2013Q3

REPORT INFORMATION
  Report Type: Spontaneous
  Country: US (occurrence: US)
  Receive Date: 20130115
  Receipt Date: 20130911
  Transmission Date: 20140515
  Serious: Yes (Hospitalization)
  Sender: FDA-Public Use
  Company Number: US-B.I. PHARMACEUTICALS,INC./RIDGEFIELD-2013-BI-00467BP

PATIENT
  Age: 76 Year
  Sex: Female
  Weight: 74.84 kg

DRUGS (3)
  1. PRADAXA [Suspect]
     Indication: ANTICOAGULANT THERAPY
     Dates: start: 201201, end: 20120212
  2. LIPITOR [Concomitant]
  3. LOTREL [Concomitant]

REACTIONS (1)
  - Epistaxis [Unknown]
